FAERS Safety Report 8531650-9 (Version None)
Quarter: 2012Q3

REPORT INFORMATION
  Report Type: 
  Country: None (occurrence: None)
  Receive Date: 20120723
  Receipt Date: 20120712
  Transmission Date: 20120928
  Serious: Yes (Disabling, Other)
  Sender: FDA-Public Use
  Company Number: US-CELGENEUS-163-21880-12040483

PATIENT
  Sex: Female

DRUGS (15)
  1. XANAX [Concomitant]
     Dosage: 1 MILLIGRAM
     Route: 065
  2. VELCADE [Concomitant]
     Route: 065
  3. REVLIMID [Suspect]
     Indication: MULTIPLE MYELOMA
     Dosage: 5 MILLIGRAM
     Route: 048
     Dates: start: 20110603
  4. MORPHINE SULFATE [Concomitant]
     Route: 065
  5. ZOFRAN [Concomitant]
     Route: 065
  6. ACYCLOVIR [Concomitant]
     Route: 065
  7. LASIX [Concomitant]
     Dosage: 20 MILLIGRAM
     Route: 041
  8. REVLIMID [Suspect]
     Dosage: 10MG-5MG
     Route: 048
     Dates: start: 20110701
  9. DECADRON [Concomitant]
     Route: 065
  10. GABAPENTIN [Concomitant]
     Dosage: 300 MILLIGRAM
     Route: 065
  11. REVLIMID [Suspect]
     Dosage: 5 MILLIGRAM
     Route: 048
     Dates: start: 20110201, end: 20120524
  12. PROCHLORPERAZ [Concomitant]
     Dosage: 10 MILLIGRAM
     Route: 065
  13. LORAZEPAM [Concomitant]
     Dosage: 1 MILLIGRAM
     Route: 065
  14. ONDANSETRON [Concomitant]
     Dosage: 4 MILLIGRAM
     Route: 065
  15. OXYCODONE HCL [Concomitant]
     Dosage: 20 MILLIGRAM
     Route: 065

REACTIONS (6)
  - CARDIAC FAILURE CONGESTIVE [None]
  - OEDEMA PERIPHERAL [None]
  - NEUROPATHY PERIPHERAL [None]
  - RASH GENERALISED [None]
  - PULMONARY HYPERTENSION [None]
  - DIASTOLIC DYSFUNCTION [None]
